FAERS Safety Report 17608527 (Version 2)
Quarter: 2020Q2

REPORT INFORMATION
  Report Type: Spontaneous
  Country: US (occurrence: US)
  Receive Date: 20200331
  Receipt Date: 20200527
  Transmission Date: 20200713
  Serious: No
  Sender: FDA-Public Use
  Company Number: US-BIOGEN-2016BI00205472

PATIENT
  Age: 34 Year
  Sex: Male

DRUGS (12)
  1. AVONEX [Suspect]
     Active Substance: INTERFERON BETA-1A
     Indication: MULTIPLE SCLEROSIS
     Route: 030
  2. AVONEX [Suspect]
     Active Substance: INTERFERON BETA-1A
  3. AVONEX PEN [Suspect]
     Active Substance: INTERFERON BETA-1A
  4. AVONEX [Suspect]
     Active Substance: INTERFERON BETA-1A
  5. AVONEX PEN [Suspect]
     Active Substance: INTERFERON BETA-1A
     Indication: MULTIPLE SCLEROSIS
     Route: 030
  6. AVONEX PEN [Suspect]
     Active Substance: INTERFERON BETA-1A
  7. TYLENOL [Concomitant]
     Active Substance: ACETAMINOPHEN
  8. CETIRIZINE [Concomitant]
     Active Substance: CETIRIZINE HYDROCHLORIDE
  9. CHLORPENIRAM-DM-ACETAMINOPHEN [Concomitant]
  10. AVONEX PEN [Suspect]
     Active Substance: INTERFERON BETA-1A
  11. AVONEX [Suspect]
     Active Substance: INTERFERON BETA-1A
  12. LORAZEPAM. [Concomitant]
     Active Substance: LORAZEPAM

REACTIONS (4)
  - Influenza like illness [Unknown]
  - Injection site atrophy [Unknown]
  - Pyrexia [Unknown]
  - Night sweats [Unknown]

NARRATIVE: CASE EVENT DATE: 20200103
